FAERS Safety Report 6754906-9 (Version None)
Quarter: 2010Q2

REPORT INFORMATION
  Report Type: 
  Country: None (occurrence: None)
  Receive Date: 20100524
  Receipt Date: 20100309
  Transmission Date: 20101027
  Serious: No
  Sender: FDA-Public Use
  Company Number: 008627

PATIENT
  Sex: Male

DRUGS (1)
  1. CIMZIA [Suspect]
     Indication: CROHN'S DISEASE
     Dosage: 200 MG EVERY 2 WEEKS SUBCUTANEOUS
     Route: 058
     Dates: start: 20090309

REACTIONS (4)
  - CHILLS [None]
  - DRUG INEFFECTIVE [None]
  - MUSCLE STRAIN [None]
  - PYREXIA [None]
